FAERS Safety Report 6305828-9 (Version None)
Quarter: 2009Q3

REPORT INFORMATION
  Report Type: 
  Country: None (occurrence: None)
  Receive Date: 20090812
  Receipt Date: 20090730
  Transmission Date: 20100115
  Serious: Yes (Other)
  Sender: FDA-Public Use
  Company Number: US-JNJFOC-20090710010

PATIENT
  Sex: Female
  Weight: 98.88 kg

DRUGS (15)
  1. REMICADE [Suspect]
     Indication: RHEUMATOID ARTHRITIS
     Dosage: 18 INFUSIONS
     Route: 042
  2. ACTOS [Concomitant]
     Route: 048
  3. ASPIRIN [Concomitant]
     Route: 048
  4. LISINOPRIL [Concomitant]
     Route: 048
  5. SENOKOT [Concomitant]
     Route: 048
  6. PREVACID [Concomitant]
     Route: 048
  7. RELPAX [Concomitant]
     Indication: MIGRAINE
     Route: 048
  8. CENTRUM MULTIVITAMINS [Concomitant]
     Indication: MIGRAINE
     Route: 048
  9. OXYCODONE HCL [Concomitant]
     Route: 048
  10. OXYCODONE HCL [Concomitant]
     Route: 048
  11. PREVACID NAPRAPAC 250 (COPACKAGED) [Concomitant]
     Route: 048
  12. CELEBREX [Concomitant]
     Route: 048
  13. CARISOPRODOL [Concomitant]
     Route: 048
  14. LEVAQUIN [Concomitant]
     Route: 048
  15. METRONIDAZOLE [Concomitant]
     Route: 048

REACTIONS (4)
  - HISTOPLASMOSIS [None]
  - HYPERSENSITIVITY [None]
  - LYMPHADENOPATHY [None]
  - URINARY TRACT INFECTION [None]
